FAERS Safety Report 16760390 (Version 1)
Quarter: 2019Q3

REPORT INFORMATION
  Report Type: Spontaneous
  Country: US (occurrence: US)
  Receive Date: 20190830
  Receipt Date: 20190830
  Transmission Date: 20191005
  Serious: No
  Sender: FDA-Public Use
  Company Number: US-GLAXOSMITHKLINE-US2019154915

PATIENT
  Age: 45 Year
  Sex: Female

DRUGS (1)
  1. NICORETTE CINNAMON SURGE [Suspect]
     Active Substance: NICOTINE
     Indication: PRODUCT USED FOR UNKNOWN INDICATION
     Dosage: 2 MG, PRN
     Dates: end: 20190823

REACTIONS (3)
  - Gingival disorder [Not Recovered/Not Resolved]
  - Oral mucosal exfoliation [Unknown]
  - Oral mucosal blistering [Unknown]
